FAERS Safety Report 24705310 (Version 1)
Quarter: 2024Q4

REPORT INFORMATION
  Report Type: Spontaneous
  Country: AU (occurrence: AU)
  Receive Date: 20241206
  Receipt Date: 20241206
  Transmission Date: 20250115
  Serious: Yes (Other)
  Sender: SAMSUNG BIOEPIS
  Company Number: AU-SAMSUNG BIOEPIS-SB-2024-36079

PATIENT
  Sex: Female

DRUGS (9)
  1. ADALIMUMAB [Suspect]
     Active Substance: ADALIMUMAB
     Indication: Ankylosing spondylitis
     Dates: start: 20190417, end: 20191113
  2. GOLIMUMAB [Suspect]
     Active Substance: GOLIMUMAB
     Indication: Ankylosing spondylitis
     Dates: start: 20210111, end: 20210711
  3. GOLIMUMAB [Suspect]
     Active Substance: GOLIMUMAB
     Dates: start: 20210111, end: 20210711
  4. MELOXICAM [Suspect]
     Active Substance: MELOXICAM
     Indication: Ankylosing spondylitis
     Dates: start: 20190923, end: 20231008
  5. MELOXICAM [Suspect]
     Active Substance: MELOXICAM
  6. METHOTREXATE [Suspect]
     Active Substance: METHOTREXATE
     Indication: Ankylosing spondylitis
     Route: 058
     Dates: start: 20210628, end: 20210724
  7. METHOTREXATE [Suspect]
     Active Substance: METHOTREXATE
  8. LEFLUNOMIDE [Concomitant]
     Active Substance: LEFLUNOMIDE
     Indication: Product used for unknown indication
     Dates: start: 20220913
  9. COSENTYX [Concomitant]
     Active Substance: SECUKINUMAB
     Indication: Hidradenitis

REACTIONS (5)
  - Renal impairment [Unknown]
  - Hypertension [Unknown]
  - Nausea [Unknown]
  - Vomiting [Unknown]
  - Therapeutic product effect incomplete [Unknown]
